FAERS Safety Report 7801901-4 (Version None)
Quarter: 2011Q4

REPORT INFORMATION
  Report Type: 
  Country: None (occurrence: None)
  Receive Date: 20111005
  Receipt Date: 20110922
  Transmission Date: 20120403
  Serious: Yes (Hospitalization)
  Sender: FDA-Public Use
  Company Number: TCI2011A04593

PATIENT
  Age: 68 Year
  Sex: Male

DRUGS (12)
  1. JANUVIA [Concomitant]
  2. BASEN TABLETS 0.3 (VOGLIBOSE) [Concomitant]
  3. FOSAMAX [Concomitant]
  4. GULFAST (MITIGLINIDE CALCIUM) [Concomitant]
  5. METGLUCO (METFORMIN HYDROCHLORIDE) [Concomitant]
  6. PURSENNID (SENNOSIDE A+B CALCIUM) [Concomitant]
  7. MAGLAX (MAGNESIUM OXIDE) [Concomitant]
  8. ADALAT [Concomitant]
  9. ACTOS [Suspect]
     Indication: DIABETES MELLITUS
     Dosage: 15 MG (15 MG, 1 IN 1 D), PER ORAL
     Route: 048
     Dates: start: 20070518, end: 20110825
  10. LIVALO [Concomitant]
  11. GLUCOBAY [Concomitant]
  12. ASPIRIN [Concomitant]

REACTIONS (3)
  - HAEMATURIA [None]
  - CEREBRAL INFARCTION [None]
  - BLADDER CANCER [None]
